FAERS Safety Report 22096078 (Version 1)
Quarter: 2023Q1

REPORT INFORMATION
  Report Type: Spontaneous
  Country: FR (occurrence: FR)
  Receive Date: 20230315
  Receipt Date: 20230315
  Transmission Date: 20230418
  Serious: Yes (Other)
  Sender: FDA-Public Use
  Company Number: FR-AFSSAPS-PB2023000249

PATIENT
  Age: 72 Year
  Sex: Male
  Weight: 63 kg

DRUGS (4)
  1. LAMOTRIGINE [Suspect]
     Active Substance: LAMOTRIGINE
     Indication: Product used for unknown indication
     Dosage: 1 CP LE MATIN (1 CP IN THE MORNING)
     Route: 048
     Dates: start: 20230113, end: 20230128
  2. LAMOTRIGINE [Suspect]
     Active Substance: LAMOTRIGINE
     Dosage: 2 CP LE MATIN (2 CP IN THE MORNING)
     Route: 048
     Dates: start: 20230128, end: 20230212
  3. LAMOTRIGINE [Suspect]
     Active Substance: LAMOTRIGINE
     Dosage: 4 CP LE MATIN (4 CP IN THE MORNING)
     Route: 048
     Dates: start: 20230212, end: 20230218
  4. LAMOTRIGINE [Suspect]
     Active Substance: LAMOTRIGINE
     Dosage: 2 CP LE MATIN (2 CP IN THE MORNING)
     Route: 048
     Dates: start: 20230218

REACTIONS (2)
  - Rash pustular [Not Recovered/Not Resolved]
  - Lymphadenitis [Not Recovered/Not Resolved]

NARRATIVE: CASE EVENT DATE: 20230221
